FAERS Safety Report 6649212-7 (Version None)
Quarter: 2010Q1

REPORT INFORMATION
  Report Type: 
  Country: None (occurrence: None)
  Receive Date: 20100324
  Receipt Date: 20100319
  Transmission Date: 20100710
  Serious: Yes (Other)
  Sender: FDA-Public Use
  Company Number: Z0001770A

PATIENT
  Sex: Female
  Weight: 62 kg

DRUGS (1)
  1. PAROXETINE HCL [Suspect]
     Indication: MAJOR DEPRESSION
     Route: 048
     Dates: start: 20090626

REACTIONS (1)
  - SUICIDE ATTEMPT [None]
